FAERS Safety Report 14756556 (Version 2)
Quarter: 2019Q1

REPORT INFORMATION
  Report Type: Spontaneous
  Country: US (occurrence: US)
  Receive Date: 20180413
  Receipt Date: 20190308
  Transmission Date: 20190417
  Serious: Yes (Other)
  Sender: FDA-Public Use
  Company Number: US-ASTRAZENECA-2018SE45254

PATIENT
  Age: 23370 Day
  Sex: Female
  Weight: 120.4 kg

DRUGS (26)
  1. KOMBIGLYZE XR [Suspect]
     Active Substance: METFORMIN HYDROCHLORIDE\SAXAGLIPTIN HYDROCHLORIDE
     Indication: DIABETES MELLITUS
     Route: 048
     Dates: start: 2012, end: 2018
  2. CELEXA [Concomitant]
     Active Substance: CITALOPRAM HYDROBROMIDE
  3. INSULIN [Concomitant]
     Active Substance: INSULIN NOS
  4. LINAGLIPTIN [Concomitant]
     Active Substance: LINAGLIPTIN
  5. ACTOS [Concomitant]
     Active Substance: PIOGLITAZONE HYDROCHLORIDE
  6. ONGLYZA [Suspect]
     Active Substance: SAXAGLIPTIN HYDROCHLORIDE
     Route: 048
     Dates: start: 2012
  7. LEVOFLOXACIN. [Concomitant]
     Active Substance: LEVOFLOXACIN
  8. PREDNISONE. [Concomitant]
     Active Substance: PREDNISONE
  9. LYRICA [Concomitant]
     Active Substance: PREGABALIN
  10. AMBIEN [Concomitant]
     Active Substance: ZOLPIDEM TARTRATE
  11. RISPERIDONE. [Concomitant]
     Active Substance: RISPERIDONE
  12. ATORVASTATIN [Concomitant]
     Active Substance: ATORVASTATIN
  13. LEVEMIR [Concomitant]
     Active Substance: INSULIN DETEMIR
  14. HABITROL [Concomitant]
     Active Substance: NICOTINE
  15. VESICARE [Concomitant]
     Active Substance: SOLIFENACIN SUCCINATE
  16. ROPINIROLE. [Concomitant]
     Active Substance: ROPINIROLE
  17. ASPIRIN. [Concomitant]
     Active Substance: ASPIRIN
  18. MUPIROCIN. [Concomitant]
     Active Substance: MUPIROCIN
  19. OMEPRAZOLE. [Concomitant]
     Active Substance: OMEPRAZOLE
  20. SPIRIVA [Concomitant]
     Active Substance: TIOTROPIUM BROMIDE MONOHYDRATE
  21. LORATADINE. [Concomitant]
     Active Substance: LORATADINE
  22. NOVOLOG [Concomitant]
     Active Substance: INSULIN ASPART
  23. FLUTICASONE. [Concomitant]
     Active Substance: FLUTICASONE
  24. LEVEMIR [Concomitant]
     Active Substance: INSULIN DETEMIR
  25. ALBUTEROL. [Concomitant]
     Active Substance: ALBUTEROL
  26. PIOGLITAZONE. [Concomitant]
     Active Substance: PIOGLITAZONE

REACTIONS (6)
  - Cardiac failure congestive [Unknown]
  - Myocardial infarction [Unknown]
  - Cardiac failure [Unknown]
  - Left ventricular dysfunction [Unknown]
  - Cardiovascular disorder [Unknown]
  - Cardiomyopathy [Unknown]

NARRATIVE: CASE EVENT DATE: 20170325
